FAERS Safety Report 4909087-0 (Version None)
Quarter: 2006Q1

REPORT INFORMATION
  Report Type: 
  Country: None (occurrence: None)
  Receive Date: 20060213
  Receipt Date: 20060202
  Transmission Date: 20060701
  Serious: Yes (Hospitalization, Other)
  Sender: FDA-Public Use
  Company Number: ES-ABBOTT-06P-144-0324073-00

PATIENT
  Age: 19 Year
  Sex: Female

DRUGS (3)
  1. DEPAKENE [Suspect]
     Indication: PSYCHOTIC DISORDER
     Dates: start: 20031201
  2. OLANZAPINE [Concomitant]
     Indication: ANXIETY
  3. ANXIOLYTICS [Concomitant]
     Indication: ANXIETY

REACTIONS (7)
  - ABDOMINAL RIGIDITY [None]
  - ADNEXA UTERI MASS [None]
  - ATELECTASIS [None]
  - FLUID RETENTION [None]
  - LEUKOCYTOSIS [None]
  - PLEURAL EFFUSION [None]
  - SUBCLAVIAN VEIN THROMBOSIS [None]
